FAERS Safety Report 8514840-0 (Version None)
Quarter: 2012Q3

REPORT INFORMATION
  Report Type: 
  Country: None (occurrence: None)
  Receive Date: 20120711
  Receipt Date: 20120711
  Transmission Date: 20120928
  Serious: Yes (Life-Threatening, Hospitalization, Disabling)
  Sender: FDA-Public Use
  Company Number: None

PATIENT
  Age: 78 Year
  Sex: Male
  Weight: 90.7194 kg

DRUGS (1)
  1. AGGRENOX [Suspect]
     Indication: TRANSIENT ISCHAEMIC ATTACK
     Dosage: 1 2/DAY PO
     Route: 048
     Dates: start: 20070415, end: 20110906

REACTIONS (3)
  - THROMBOSIS [None]
  - PULMONARY THROMBOSIS [None]
  - SUBDURAL HAEMATOMA [None]
